FAERS Safety Report 4361406-2 (Version None)
Quarter: 2004Q2

REPORT INFORMATION
  Report Type: 
  Country: None (occurrence: None)
  Receive Date: 20040519
  Receipt Date: 20040519
  Transmission Date: 20050107
  Serious: Yes (Life-Threatening)
  Sender: FDA-Public Use
  Company Number: None

PATIENT
  Age: 64 Year
  Sex: Male

DRUGS (6)
  1. HYDROMORPHONE HCL [Suspect]
     Indication: PAIN
     Dosage: 1 MG IV
     Route: 042
     Dates: start: 20040217
  2. HYDROMORPHONE HCL [Suspect]
     Indication: SPINAL CORD COMPRESSION
     Dosage: 1 MG IV
     Route: 042
     Dates: start: 20040217
  3. MS CONTIN [Concomitant]
  4. OXYCODONE AND ACETAMINOPHEN [Concomitant]
  5. PROMETHAZINE [Concomitant]
  6. LORAZEPAM [Concomitant]

REACTIONS (3)
  - DEPRESSED LEVEL OF CONSCIOUSNESS [None]
  - OXYGEN SATURATION DECREASED [None]
  - RESPIRATORY RATE DECREASED [None]
